FAERS Safety Report 16913482 (Version 1)
Quarter: 2019Q4

REPORT INFORMATION
  Report Type: Spontaneous
  Country: AU (occurrence: AU)
  Receive Date: 20191014
  Receipt Date: 20191014
  Transmission Date: 20200122
  Serious: Yes (Other)
  Sender: FDA-Public Use
  Company Number: AU-SUNOVION-2019SUN004316

PATIENT
  Age: 56 Year
  Sex: Male

DRUGS (6)
  1. ZUCLOPENTHIXOL [Suspect]
     Active Substance: ZUCLOPENTHIXOL
     Indication: SCHIZOAFFECTIVE DISORDER
     Dosage: 400 MG, Q2WEEKS
  2. LITHIUM. [Suspect]
     Active Substance: LITHIUM
     Indication: SCHIZOAFFECTIVE DISORDER
     Dosage: 900 MG
  3. LATUDA [Suspect]
     Active Substance: LURASIDONE HYDROCHLORIDE
     Indication: SCHIZOAFFECTIVE DISORDER
     Dosage: 160 MG, QD
     Route: 048
  4. BENZTROPINE. [Suspect]
     Active Substance: BENZTROPINE
  5. CLOZAPINE. [Suspect]
     Active Substance: CLOZAPINE
     Indication: SCHIZOAFFECTIVE DISORDER
  6. ZUCLOPENTHIXOL [Suspect]
     Active Substance: ZUCLOPENTHIXOL
     Dosage: 300 MG, Q2WEEKS

REACTIONS (12)
  - Renal impairment [Recovering/Resolving]
  - Cognitive disorder [Recovering/Resolving]
  - Apathy [Recovering/Resolving]
  - Off label use [Unknown]
  - Myoclonus [Recovering/Resolving]
  - Encephalopathy [Recovering/Resolving]
  - Drug ineffective for unapproved indication [Recovering/Resolving]
  - Fatigue [Recovering/Resolving]
  - Memory impairment [Recovering/Resolving]
  - Myocarditis [Recovering/Resolving]
  - Disorientation [Recovering/Resolving]
  - Parkinsonism [Recovering/Resolving]
